FAERS Safety Report 10996556 (Version 1)
Quarter: 2015Q2

REPORT INFORMATION
  Report Type: Spontaneous
  Country: US (occurrence: US)
  Receive Date: 20150408
  Receipt Date: 20150408
  Transmission Date: 20150821
  Serious: No
  Sender: FDA-Public Use
  Company Number: US-ASTRAZENECA-2015SE30899

PATIENT
  Sex: Female
  Weight: 68.5 kg

DRUGS (6)
  1. PULMICORT FLEXHALER [Suspect]
     Active Substance: BUDESONIDE
     Indication: ASTHMA
     Dosage: 1 PUFF BID
     Route: 055
     Dates: start: 2014
  2. ADVAIR DISKUS [Concomitant]
     Active Substance: FLUTICASONE PROPIONATE\SALMETEROL XINAFOATE
     Indication: ASTHMA
     Route: 055
     Dates: start: 2000
  3. PULMICORT FLEXHALER [Suspect]
     Active Substance: BUDESONIDE
     Indication: ASTHMA
     Dosage: 180MCG 1 PUFF BID
     Route: 055
  4. PULMICORT FLEXHALER [Suspect]
     Active Substance: BUDESONIDE
     Indication: ASTHMA
     Dosage: 1 PUFF BID
     Route: 055
     Dates: start: 2013
  5. VENTOLIN [Concomitant]
     Active Substance: ALBUTEROL SULFATE
     Indication: WHEEZING
     Route: 055
  6. FLUTICASONE [Concomitant]
     Active Substance: FLUTICASONE\FLUTICASONE PROPIONATE
     Indication: DYSPNOEA
     Route: 045

REACTIONS (10)
  - Headache [Unknown]
  - Cough [Unknown]
  - Muscular weakness [Unknown]
  - Hypoacusis [Unknown]
  - Drug dose omission [Unknown]
  - Candida infection [Unknown]
  - Intentional product misuse [Unknown]
  - Visual acuity reduced [Unknown]
  - Eye disorder [Unknown]
  - Oropharyngeal pain [Unknown]
